FAERS Safety Report 8044674-5 (Version None)
Quarter: 2012Q1

REPORT INFORMATION
  Report Type: 
  Country: None (occurrence: None)
  Receive Date: 20120113
  Receipt Date: 20120105
  Transmission Date: 20120608
  Serious: Yes (Other)
  Sender: FDA-Public Use
  Company Number: FR-VERTEX PHARMACEUTICALS INC.-AE-2011-003479

PATIENT
  Sex: Female
  Weight: 57 kg

DRUGS (5)
  1. INCIVO (TELAPREVIR) [Suspect]
     Indication: HEPATITIS C
     Route: 048
     Dates: start: 20111017
  2. COPEGUS [Concomitant]
     Indication: HEPATITIS C
     Route: 048
     Dates: start: 20111017
  3. ATARAX [Concomitant]
     Indication: ANXIETY
     Route: 048
  4. PEGASYS [Concomitant]
     Indication: HEPATITIS C
     Route: 058
     Dates: start: 20111017
  5. IXEL [Concomitant]
     Indication: DEPRESSION
     Route: 065

REACTIONS (1)
  - LOOSE TOOTH [None]
